FAERS Safety Report 10228301 (Version 1)
Quarter: 2014Q2

REPORT INFORMATION
  Report Type: Spontaneous
  Country: US (occurrence: US)
  Receive Date: 20140610
  Receipt Date: 20140610
  Transmission Date: 20141212
  Serious: No
  Sender: FDA-Public Use
  Company Number: US-B.I. PHARMACEUTICALS,INC./RIDGEFIELD-2014-BI-24247BP

PATIENT
  Sex: Female

DRUGS (26)
  1. CATAPRES [Suspect]
     Indication: PRODUCT USED FOR UNKNOWN INDICATION
     Route: 065
  2. LYRICA [Concomitant]
     Dosage: 1 CAPSULE Q AM AND 2 CAPSULES PO Q PM
     Route: 048
  3. CYMBALTA [Concomitant]
     Dosage: 80 MG
     Route: 065
  4. ULTRAM [Concomitant]
     Indication: PAIN
     Dosage: 2 TABLETS QID PRN-MAX 8 TABS PER 24 HOUR PERIOD
     Route: 048
  5. CELEBREX [Concomitant]
     Dosage: 1 TAB ONCE DAILY
     Route: 048
  6. SKELAXIN [Concomitant]
     Dosage: 1 TAB TID PRN
     Route: 065
  7. AMBIEN [Concomitant]
     Dosage: ONE TABLET AT BED TIME
     Route: 048
  8. ONDANSETRON HCL [Concomitant]
     Indication: NAUSEA
     Dosage: ONE TABLET EVERY 6 HOURS AS NEEDED
     Route: 065
  9. LEVOTHYROXINE SODIUM [Concomitant]
     Dosage: 1 ANZ
     Route: 048
  10. LISINOPRIL [Concomitant]
     Dosage: 10 MG
     Route: 048
  11. ASTELIN [Concomitant]
     Route: 065
  12. FLONASE [Concomitant]
     Route: 048
  13. NEXIUM [Concomitant]
     Dosage: 20 MG
     Route: 065
  14. FLAX SEED OIL [Concomitant]
     Dosage: 3 ANZ
     Route: 065
  15. VITAMIN D [Concomitant]
     Dosage: 2000 U
     Route: 065
  16. ADVANCED E [Concomitant]
     Dosage: 1 ANZ
     Route: 065
  17. ADVAIR DISKUS [Concomitant]
     Dosage: DOSE PER APPLICATION: 500-50 MCG/DOSE
     Route: 055
  18. PREMARIN [Concomitant]
     Route: 048
  19. B-12 [Concomitant]
     Dosage: 1000 MCG
     Route: 065
  20. EPIPEN [Concomitant]
     Dosage: DOSE PER APPLICATION: 03 MG PER 0.3 ML
     Route: 065
  21. VENTOLIN [Concomitant]
     Indication: ASTHMA
     Dosage: DOSE PER APPLICATION: 108 (90 BASE) MCG
     Route: 065
  22. ADVIL [Concomitant]
     Indication: PAIN
     Route: 065
  23. ADVIL [Concomitant]
     Indication: INFLAMMATION
  24. CYANOCOBALAMIN [Concomitant]
     Dosage: DOSE PER APPLICATION UNIT: MCG PER ML SOLUTION, DAILY DOSE: 1CC
     Route: 065
  25. CYANOCOBALAMIN [Concomitant]
     Dosage: DOSE PER APPLICATION UNIT: MCG PER ML SOLUTION, DAILY DOSE: 1CC
     Route: 065
  26. CYANOCOBALAMIN [Concomitant]
     Dosage: DOSE PER APPLICATION UNIT: MCG PER ML SOLUTION, DAILY DOSE: 1CC
     Route: 065

REACTIONS (1)
  - Hypersensitivity [Unknown]
